FAERS Safety Report 5103344-3 (Version None)
Quarter: 2006Q3

REPORT INFORMATION
  Report Type: 
  Country: None (occurrence: None)
  Receive Date: 20060913
  Receipt Date: 20060907
  Transmission Date: 20061208
  Serious: Yes (Death)
  Sender: FDA-Public Use
  Company Number: NL-PURDUE-GBR_2006_0002475

PATIENT
  Age: 76 Year
  Sex: Female

DRUGS (3)
  1. OXYCONTIN [Suspect]
     Indication: DRUG USE FOR UNKNOWN INDICATION
     Dosage: 2X10 MG DAILY
     Route: 065
     Dates: start: 20030912
  2. OXAZEPAM [Concomitant]
     Dosage: 1-3 X 10 MG DAILY
     Dates: start: 20030912
  3. PANTOZOL [Concomitant]
     Dosage: 20 MG, DAILY
     Dates: start: 20030912

REACTIONS (1)
  - DEATH [None]
